FAERS Safety Report 24458444 (Version 1)
Quarter: 2024Q4

REPORT INFORMATION
  Report Type: Spontaneous
  Country: US (occurrence: US)
  Receive Date: 20241018
  Receipt Date: 20241018
  Transmission Date: 20250115
  Serious: Yes (Hospitalization, Other)
  Sender: MERCK
  Company Number: US-009507513-2410USA004508

PATIENT
  Sex: Female

DRUGS (1)
  1. WELIREG [Suspect]
     Active Substance: BELZUTIFAN
     Indication: Renal cell carcinoma
     Dosage: 120 MILLIGRAM
     Route: 048
     Dates: start: 20240619, end: 20240926

REACTIONS (6)
  - Haemorrhage [Unknown]
  - Haemorrhage urinary tract [Recovering/Resolving]
  - Urethral obstruction [Recovering/Resolving]
  - Haemoglobin decreased [Unknown]
  - Blood potassium abnormal [Unknown]
  - Blood sodium abnormal [Unknown]

NARRATIVE: CASE EVENT DATE: 20240101
